FAERS Safety Report 17097128 (Version 1)
Quarter: 2019Q4

REPORT INFORMATION
  Report Type: Spontaneous
  Country: JP (occurrence: JP)
  Receive Date: 20191202
  Receipt Date: 20191202
  Transmission Date: 20200122
  Serious: Yes (Hospitalization)
  Sender: FDA-Public Use
  Company Number: JP-TEVA-2019-JP-1146342

PATIENT
  Age: 72 Year
  Sex: Male

DRUGS (3)
  1. HEPARIN [Suspect]
     Active Substance: HEPARIN SODIUM
     Indication: PULMONARY VENOUS THROMBOSIS
     Dosage: 15000 IU (INTERNATIONAL UNIT) DAILY;
     Route: 041
  2. RIVAROXABAN [Suspect]
     Active Substance: RIVAROXABAN
     Indication: PULMONARY VENOUS THROMBOSIS
     Dosage: 15 MILLIGRAM DAILY;
     Route: 048
  3. WARFARIN [Suspect]
     Active Substance: WARFARIN
     Indication: PULMONARY VENOUS THROMBOSIS
     Dosage: 3 MILLIGRAM DAILY;
     Route: 048

REACTIONS (4)
  - Off label use [Unknown]
  - Retroperitoneal haematoma [Unknown]
  - Anaemia [Unknown]
  - Cerebellar haemorrhage [Recovering/Resolving]
